FAERS Safety Report 22216636 (Version 1)
Quarter: 2023Q2

REPORT INFORMATION
  Report Type: Report from Study
  Country: CA (occurrence: CA)
  Receive Date: 20230417
  Receipt Date: 20230417
  Transmission Date: 20230722
  Serious: Yes (Other)
  Sender: FDA-Public Use
  Company Number: CA-JNJFOC-20230207245

PATIENT
  Age: 38 Year
  Sex: Female
  Weight: 61.290 kg

DRUGS (1)
  1. REMICADE [Suspect]
     Active Substance: INFLIXIMAB
     Indication: Crohn^s disease
     Dosage: EXPIRY DATE: 01-JUN-2025, 01-JUL-2025
     Route: 041

REACTIONS (3)
  - Tension headache [Recovering/Resolving]
  - Influenza like illness [Not Recovered/Not Resolved]
  - Attention deficit hyperactivity disorder [Unknown]

NARRATIVE: CASE EVENT DATE: 20230202
